FAERS Safety Report 4829862-0 (Version None)
Quarter: 2005Q4

REPORT INFORMATION
  Report Type: 
  Country: None (occurrence: None)
  Receive Date: 20051115
  Receipt Date: 20051103
  Transmission Date: 20060501
  Serious: Yes (Hospitalization, Disabling, Other)
  Sender: FDA-Public Use
  Company Number: 2005137065

PATIENT
  Age: 38 Year
  Sex: Female

DRUGS (6)
  1. RELPAX [Suspect]
     Indication: MIGRAINE
     Dosage: 40 MG
  2. ELAVIL [Concomitant]
  3. FEXOFENADINE HCL [Concomitant]
  4. FLONASE [Concomitant]
  5. MOTRIN [Concomitant]
  6. MEDROXYPROGESTERONE [Concomitant]

REACTIONS (5)
  - CEREBRAL INFARCTION [None]
  - CEREBROVASCULAR ACCIDENT [None]
  - LACUNAR INFARCTION [None]
  - NAUSEA [None]
  - VOMITING [None]
